FAERS Safety Report 16796358 (Version 1)
Quarter: 2019Q3

REPORT INFORMATION
  Report Type: Spontaneous
  Country: FR (occurrence: FR)
  Receive Date: 20190911
  Receipt Date: 20190911
  Transmission Date: 20191005
  Serious: Yes (Life-Threatening)
  Sender: FDA-Public Use
  Company Number: FR-MYLANLABS-2019M1085521

PATIENT
  Age: 65 Year
  Sex: Female

DRUGS (7)
  1. BACTRIM [Suspect]
     Active Substance: SULFAMETHOXAZOLE\TRIMETHOPRIM
     Indication: PROPHYLAXIS
     Dosage: 1 CP LE LUNDI, LE MERCREDI ET LE VENDREDI
     Route: 048
     Dates: start: 20190212
  2. ESOMEPRAZOLE. [Suspect]
     Active Substance: ESOMEPRAZOLE MAGNESIUM
     Indication: GASTRIC ULCER
     Dosage: 40 MILLIGRAM, QD
     Route: 048
     Dates: start: 20190212
  3. IMOVANE [Suspect]
     Active Substance: ZOPICLONE
     Indication: INSOMNIA
     Dosage: 1 DOSAGE FORM, QD
     Route: 048
     Dates: start: 20190212, end: 20190402
  4. CARBOPLATINE [Suspect]
     Active Substance: CARBOPLATIN
     Indication: BRAIN CANCER METASTATIC
     Dosage: 700 MILLIGRAM, Q21D
     Route: 042
     Dates: start: 20190322, end: 20190322
  5. KEPPRA [Suspect]
     Active Substance: LEVETIRACETAM
     Indication: EPILEPSY
     Dosage: 2 DOSAGE FORM, QD
     Route: 048
     Dates: start: 20190322
  6. CORTANCYL [Suspect]
     Active Substance: PREDNISONE
     Indication: BRAIN CANCER METASTATIC
     Dosage: 40 MILLIGRAM, QD
     Route: 048
     Dates: start: 20190212, end: 20190328
  7. ALIMTA [Suspect]
     Active Substance: PEMETREXED DISODIUM
     Indication: BRAIN CANCER METASTATIC
     Dosage: 825 MILLIGRAM, Q21D
     Route: 042
     Dates: start: 20190322, end: 20190322

REACTIONS (1)
  - Meningitis herpes [Recovering/Resolving]

NARRATIVE: CASE EVENT DATE: 20190328
